FAERS Safety Report 7484397-4 (Version None)
Quarter: 2011Q2

REPORT INFORMATION
  Report Type: 
  Country: None (occurrence: None)
  Receive Date: 20110517
  Receipt Date: 20110503
  Transmission Date: 20111010
  Serious: Yes (Other)
  Sender: FDA-Public Use
  Company Number: FI-JNJFOC-20110307736

PATIENT
  Sex: Male

DRUGS (3)
  1. REMICADE [Suspect]
     Indication: CROHN'S DISEASE
     Route: 042
     Dates: start: 20070901
  2. AZATHIOPRINE [Concomitant]
  3. PENTASA [Concomitant]
     Dosage: 3+3

REACTIONS (1)
  - SCHIZOPHRENIA [None]
